FAERS Safety Report 9249213 (Version 1)
Quarter: 2013Q2

REPORT INFORMATION
  Report Type: Spontaneous
  Country: FR (occurrence: FR)
  Receive Date: 20130423
  Receipt Date: 20130425
  Transmission Date: 20140414
  Serious: Yes (Life-Threatening)
  Sender: FDA-Public Use
  Company Number: FR-TEVA-397786ISR

PATIENT
  Age: 62 Year
  Sex: Female

DRUGS (4)
  1. DOXORUBICIN NOS [Suspect]
     Dosage: 480 MILLIGRAM DAILY; TOTAL DOSE RECEIVED 480 MG
     Dates: start: 20121019, end: 20130207
  2. VINCRISTINE TEVA [Suspect]
     Dosage: ON DAY 1
     Dates: start: 20121019, end: 20130207
  3. ENDOXAN [Suspect]
     Dates: start: 20121019, end: 20130207
  4. PREDNISONE [Concomitant]
     Dosage: FROM DAY 1 TO DAY 5
     Dates: start: 20121019, end: 20130207

REACTIONS (3)
  - Cardiogenic shock [Not Recovered/Not Resolved]
  - Ejection fraction decreased [Not Recovered/Not Resolved]
  - Cardiomyopathy [Not Recovered/Not Resolved]
